FAERS Safety Report 4831026-1 (Version None)
Quarter: 2005Q4

REPORT INFORMATION
  Report Type: 
  Country: None (occurrence: None)
  Receive Date: 20051118
  Receipt Date: 20051104
  Transmission Date: 20060501
  Serious: Yes (Hospitalization)
  Sender: FDA-Public Use
  Company Number: GB-BOEHRINGER INGELHEIM PHARMACEUTICALS, INC.-2005-UK-02352UK

PATIENT
  Age: 23 Year
  Sex: Female

DRUGS (4)
  1. ATROVENT [Suspect]
     Indication: ASTHMA
     Dosage: 2 PUFFS QDS
  2. FLIXOTIDE [Suspect]
     Dosage: 25MCG 2P BD
  3. SODIUM CROMOGLYCATE [Concomitant]
     Dosage: BD
  4. SALBUTAMOL [Concomitant]
     Dosage: 2 PUFFS QDS

REACTIONS (1)
  - CONDITION AGGRAVATED [None]
